FAERS Safety Report 21913092 (Version 1)
Quarter: 2023Q1

REPORT INFORMATION
  Report Type: Spontaneous
  Country: US (occurrence: US)
  Receive Date: 20230125
  Receipt Date: 20230125
  Transmission Date: 20230418
  Serious: No
  Sender: FDA-Public Use
  Company Number: US-ALLERGAN-2206506US

PATIENT
  Age: 62 Year
  Sex: Female
  Weight: 84.807 kg

DRUGS (21)
  1. BOTOX [Suspect]
     Active Substance: ONABOTULINUMTOXINA
     Indication: Muscle spasticity
     Dosage: UNK UNK, SINGLE
     Dates: start: 20220215, end: 20220215
  2. BOTOX [Suspect]
     Active Substance: ONABOTULINUMTOXINA
     Dosage: UNK UNK, SINGLE
     Dates: start: 20220215, end: 20220215
  3. BOTOX [Suspect]
     Active Substance: ONABOTULINUMTOXINA
     Dosage: 50 UNITS, SINGLE
     Dates: start: 20220215, end: 20220215
  4. BOTOX [Suspect]
     Active Substance: ONABOTULINUMTOXINA
     Dosage: 50 UNITS, SINGLE
     Dates: start: 20220215, end: 20220215
  5. BOTOX [Suspect]
     Active Substance: ONABOTULINUMTOXINA
     Dosage: 100 UNITS, SINGLE
     Dates: start: 20220215, end: 20220215
  6. BOTOX [Suspect]
     Active Substance: ONABOTULINUMTOXINA
     Dosage: 50 UNITS, SINGLE
     Dates: start: 20220215, end: 20220215
  7. BOTOX [Suspect]
     Active Substance: ONABOTULINUMTOXINA
     Dosage: 50 UNITS, SINGLE
     Dates: start: 20220215, end: 20220215
  8. BOTOX [Suspect]
     Active Substance: ONABOTULINUMTOXINA
     Dosage: 50 UNITS, SINGLE
     Dates: start: 20220215, end: 20220215
  9. BOTOX [Suspect]
     Active Substance: ONABOTULINUMTOXINA
     Dosage: 50 UNITS, SINGLE
     Dates: start: 20220215, end: 20220215
  10. BOTOX [Suspect]
     Active Substance: ONABOTULINUMTOXINA
     Dosage: 50 UNITS, SINGLE
     Dates: start: 20220215, end: 20220215
  11. BOTOX [Suspect]
     Active Substance: ONABOTULINUMTOXINA
     Dosage: 75 UNITS, SINGLE
     Dates: start: 20220215, end: 20220215
  12. BOTOX [Suspect]
     Active Substance: ONABOTULINUMTOXINA
     Dosage: 75 UNITS, SINGLE
     Dates: start: 20220215, end: 20220215
  13. AMBIEN [Concomitant]
     Active Substance: ZOLPIDEM TARTRATE
  14. ALBUTEROL [Concomitant]
     Active Substance: ALBUTEROL
  15. AMLODIPINE [Concomitant]
     Active Substance: AMLODIPINE BESYLATE
  16. BACLOFEN [Concomitant]
     Active Substance: BACLOFEN
  17. ASPIRIN [Concomitant]
     Active Substance: ASPIRIN
  18. LORATADINE [Concomitant]
     Active Substance: LORATADINE
  19. SPIRIVA [Concomitant]
     Active Substance: TIOTROPIUM BROMIDE MONOHYDRATE
  20. SERTRALINE [Concomitant]
     Active Substance: SERTRALINE HYDROCHLORIDE
  21. TRAZODONE [Concomitant]
     Active Substance: TRAZODONE HYDROCHLORIDE

REACTIONS (3)
  - Erythema [Recovered/Resolved]
  - Injection site pruritus [Recovered/Resolved]
  - Off label use [Unknown]

NARRATIVE: CASE EVENT DATE: 20220221
